FAERS Safety Report 23896131 (Version 1)
Quarter: 2024Q2

REPORT INFORMATION
  Report Type: Spontaneous
  Country: US (occurrence: None)
  Receive Date: 20240523
  Receipt Date: 20240523
  Transmission Date: 20240716
  Serious: Yes (Hospitalization)
  Sender: FDA-Public Use
  Company Number: None

PATIENT
  Age: 72 Year
  Sex: Male

DRUGS (3)
  1. PROPOFOL [Suspect]
     Active Substance: PROPOFOL
     Indication: Anaesthesia
     Dates: start: 20240515, end: 20240515
  2. ROCURONIUM BROMIDE [Suspect]
     Active Substance: ROCURONIUM BROMIDE
     Indication: Anaesthesia
     Dates: start: 20240515, end: 20240515
  3. FENTANYL [Suspect]
     Active Substance: FENTANYL\FENTANYL CITRATE

REACTIONS (10)
  - Atrial fibrillation [None]
  - Procedural hypotension [None]
  - Anaesthetic complication [None]
  - Anaesthetic complication pulmonary [None]
  - Acute respiratory failure [None]
  - Respiratory failure [None]
  - Hypervolaemia [None]
  - Acute pulmonary oedema [None]
  - Bronchospasm [None]
  - Drug intolerance [None]

NARRATIVE: CASE EVENT DATE: 20240515
